FAERS Safety Report 8301905-1 (Version None)
Quarter: 2012Q2

REPORT INFORMATION
  Report Type: 
  Country: None (occurrence: None)
  Receive Date: 20120420
  Receipt Date: 20120412
  Transmission Date: 20120825
  Serious: Yes (Other)
  Sender: FDA-Public Use
  Company Number: CA-ROCHE-1059535

PATIENT
  Sex: Female

DRUGS (6)
  1. METHOTREXATE [Concomitant]
     Route: 058
  2. HYDROCHLOROTHIAZIDE [Concomitant]
  3. HEPARIN [Concomitant]
     Dates: end: 20120418
  4. VALSARTAN [Concomitant]
  5. PREDNISONE [Concomitant]
  6. MABTHERA [Suspect]
     Indication: RHEUMATOID ARTHRITIS
     Route: 042
     Dates: start: 20120404

REACTIONS (1)
  - THROMBOSIS [None]
